FAERS Safety Report 4520930-X (Version None)
Quarter: 2004Q4

REPORT INFORMATION
  Report Type: 
  Country: None (occurrence: None)
  Receive Date: 20041206
  Receipt Date: 20041124
  Transmission Date: 20050328
  Serious: Yes (Hospitalization)
  Sender: FDA-Public Use
  Company Number: HQWYE626922NOV04

PATIENT
  Age: 19 Year
  Sex: Female

DRUGS (2)
  1. MINOMYCIN (MINOCYCLINE, TABLET) [Suspect]
     Dosage: ORAL
     Route: 048
  2. FLAVITAN (FLAVINE ADENINE DINUCLEOTIDE) [Concomitant]

REACTIONS (4)
  - ADHESION [None]
  - ASPIRATION [None]
  - BRONCHOALVEOLAR LAVAGE ABNORMAL [None]
  - COUGH [None]
